FAERS Safety Report 7504296-9 (Version None)
Quarter: 2011Q2

REPORT INFORMATION
  Report Type: 
  Country: None (occurrence: None)
  Receive Date: 20110525
  Receipt Date: 20110523
  Transmission Date: 20111010
  Serious: Yes (Other)
  Sender: FDA-Public Use
  Company Number: IT-BAYER-2011-044268

PATIENT
  Age: 37 Year
  Sex: Female

DRUGS (1)
  1. NEXAVAR [Suspect]
     Indication: HEPATIC NEOPLASM
     Dosage: UNK
     Dates: start: 20110427, end: 20110502

REACTIONS (4)
  - PAIN IN EXTREMITY [None]
  - DRY SKIN [None]
  - MUSCULAR WEAKNESS [None]
  - OEDEMA PERIPHERAL [None]
